FAERS Safety Report 24036188 (Version 1)
Quarter: 2024Q3

REPORT INFORMATION
  Report Type: Spontaneous
  Country: ZA (occurrence: None)
  Receive Date: 20240701
  Receipt Date: 20240701
  Transmission Date: 20241016
  Serious: Yes (Death, Hospitalization)
  Sender: ASTRAZENECA
  Company Number: 2024A147831

PATIENT
  Age: 79 Year
  Sex: Female

DRUGS (7)
  1. DAPAGLIFLOZIN PROPANEDIOL [Suspect]
     Active Substance: DAPAGLIFLOZIN PROPANEDIOL
     Route: 048
  2. STOPAYNE [Concomitant]
  3. AMITRIPTYLINE HYDROCHLORIDE [Concomitant]
     Active Substance: AMITRIPTYLINE HYDROCHLORIDE
  4. PREGABALIN [Concomitant]
     Active Substance: PREGABALIN
  5. ZYDUS FLUOXETINE [Concomitant]
  6. SPIRACTIN [Concomitant]
  7. ZOPICLONE [Concomitant]
     Active Substance: ZOPICLONE

REACTIONS (3)
  - Illness [Fatal]
  - Circulatory collapse [Fatal]
  - General physical health deterioration [Fatal]

NARRATIVE: CASE EVENT DATE: 20240401
